FAERS Safety Report 14016855 (Version 3)
Quarter: 2018Q1

REPORT INFORMATION
  Report Type: Spontaneous
  Country: US (occurrence: US)
  Receive Date: 20170927
  Receipt Date: 20180207
  Transmission Date: 20180508
  Serious: No
  Sender: FDA-Public Use
  Company Number: PHEH2017US030945

PATIENT
  Age: 76 Year
  Sex: Male

DRUGS (2)
  1. LENVIMA [Suspect]
     Active Substance: LENVATINIB
     Indication: RENAL CANCER METASTATIC
     Dosage: 18 MG, QD
     Route: 048
     Dates: start: 20170914
  2. AFINITOR [Suspect]
     Active Substance: EVEROLIMUS
     Indication: RENAL CANCER METASTATIC
     Dosage: 5 MG, QD
     Route: 048
     Dates: start: 20170914

REACTIONS (5)
  - Back pain [Unknown]
  - Initial insomnia [Not Recovered/Not Resolved]
  - Abdominal discomfort [Recovered/Resolved]
  - Nerve compression [Unknown]
  - Appetite disorder [Recovered/Resolved]

NARRATIVE: CASE EVENT DATE: 201709
